FAERS Safety Report 9298838 (Version 1)
Quarter: 2013Q2

REPORT INFORMATION
  Report Type: Spontaneous
  Country: US (occurrence: US)
  Receive Date: 20130520
  Receipt Date: 20130520
  Transmission Date: 20140414
  Serious: Yes (Other)
  Sender: FDA-Public Use
  Company Number: US-ELI_LILLY_AND_COMPANY-US201302004925

PATIENT
  Sex: Male

DRUGS (3)
  1. ZYPREXA RELPREVV [Suspect]
     Indication: SCHIZOPHRENIA
     Dosage: 405 MG, MONTHLY (1/M)
     Route: 030
     Dates: start: 201211
  2. ZYPREXA RELPREVV [Suspect]
     Dosage: 300 MG, MONTHLY (1/M)
     Route: 030
     Dates: end: 201302
  3. ZYPREXA RELPREVV [Suspect]
     Dosage: 405 MG, MONTHLY (1/M)
     Route: 030
     Dates: start: 20130426

REACTIONS (4)
  - Hepatitis C [Unknown]
  - Cholelithiasis [Unknown]
  - Aspartate aminotransferase increased [Unknown]
  - Alanine aminotransferase increased [Unknown]
